FAERS Safety Report 9180807 (Version 1)
Quarter: 2013Q1

REPORT INFORMATION
  Report Type: Report from Study
  Country: CA (occurrence: CA)
  Receive Date: 20130322
  Receipt Date: 20130322
  Transmission Date: 20140127
  Serious: Yes (Hospitalization)
  Sender: FDA-Public Use
  Company Number: CA-JNJFOC-20130307596

PATIENT
  Age: 25 Year
  Sex: Male
  Weight: 115 kg

DRUGS (2)
  1. REMICADE [Suspect]
     Indication: ANKYLOSING SPONDYLITIS
     Route: 042
     Dates: start: 2006
  2. REMICADE [Suspect]
     Indication: CROHN^S DISEASE
     Route: 042
     Dates: start: 2006

REACTIONS (3)
  - Loss of consciousness [Recovering/Resolving]
  - Dehydration [Recovering/Resolving]
  - Fractured coccyx [Unknown]
